FAERS Safety Report 8215713-3 (Version None)
Quarter: 2012Q1

REPORT INFORMATION
  Report Type: 
  Country: None (occurrence: None)
  Receive Date: 20120316
  Receipt Date: 20120307
  Transmission Date: 20120608
  Serious: Yes (Other)
  Sender: FDA-Public Use
  Company Number: US-BRISTOL-MYERS SQUIBB COMPANY-16442543

PATIENT
  Age: 64 Year

DRUGS (1)
  1. ABILIFY [Suspect]

REACTIONS (1)
  - PARKINSON'S DISEASE [None]
